FAERS Safety Report 20735076 (Version 4)
Quarter: 2022Q4

REPORT INFORMATION
  Report Type: Report from Study
  Country: US (occurrence: US)
  Receive Date: 20220421
  Receipt Date: 20221014
  Transmission Date: 20230113
  Serious: Yes (Hospitalization, Other)
  Sender: FDA-Public Use
  Company Number: US-ABBVIE-22K-163-4364432-00

PATIENT
  Sex: Male
  Weight: 75.296 kg

DRUGS (9)
  1. SKYRIZI [Suspect]
     Active Substance: RISANKIZUMAB-RZAA
     Indication: Psoriasis
     Dosage: STRENGTH : 150  MG
     Route: 058
     Dates: start: 20211008, end: 20220204
  2. METFORMIN [Concomitant]
     Active Substance: METFORMIN HYDROCHLORIDE
     Indication: Product used for unknown indication
  3. Johnson + Johnson covid vaccine [Concomitant]
     Indication: COVID-19 immunisation
     Dosage: 3RD DOSE
     Route: 030
     Dates: start: 20210316, end: 20210316
  4. Johnson + Johnson covid vaccine [Concomitant]
     Indication: COVID-19 immunisation
     Dosage: 2ND DOSE
     Route: 030
  5. Johnson + Johnson covid vaccine [Concomitant]
     Indication: COVID-19 immunisation
     Dosage: 1ST DOSE
     Route: 030
     Dates: start: 20201101, end: 20201101
  6. PANTOPRAZOLE [Concomitant]
     Active Substance: PANTOPRAZOLE
     Indication: Product used for unknown indication
  7. GABAPENTIN [Concomitant]
     Active Substance: GABAPENTIN
     Indication: Product used for unknown indication
  8. TAMSULOSIN [Concomitant]
     Active Substance: TAMSULOSIN
     Indication: Product used for unknown indication
  9. ATORVASTATIN [Concomitant]
     Active Substance: ATORVASTATIN
     Indication: Product used for unknown indication

REACTIONS (5)
  - Atrial septal defect [Unknown]
  - Oesophageal rupture [Unknown]
  - Surgery [Recovering/Resolving]
  - Tracheal injury [Unknown]
  - Psoriasis [Unknown]

NARRATIVE: CASE EVENT DATE: 20220101
